FAERS Safety Report 6717168-4 (Version None)
Quarter: 2010Q2

REPORT INFORMATION
  Report Type: 
  Country: None (occurrence: None)
  Receive Date: 20100510
  Receipt Date: 20100429
  Transmission Date: 20101027
  Serious: Yes (Disabling, Other)
  Sender: FDA-Public Use
  Company Number: AU-ASTRAZENECA-2010SE14285

PATIENT
  Age: 693 Month
  Sex: Female

DRUGS (5)
  1. NEXIUM [Suspect]
     Indication: REFLUX GASTRITIS
     Route: 048
     Dates: start: 20080301, end: 20100125
  2. METOPROLOL [Concomitant]
     Indication: HYPERTENSION
     Dosage: 50
     Route: 048
  3. DIABEX XR [Concomitant]
     Indication: DIABETES MELLITUS
     Dosage: 500
     Route: 048
  4. CADUET [Concomitant]
     Indication: HYPERTENSION
     Dosage: 40/20
     Route: 048
  5. MICARDIS [Concomitant]
     Indication: HYPERTENSION
     Dosage: 80
     Route: 048

REACTIONS (2)
  - HYPOCALCAEMIA [None]
  - HYPOMAGNESAEMIA [None]
